FAERS Safety Report 15195571 (Version 3)
Quarter: 2018Q3

REPORT INFORMATION
  Report Type: Report from Study
  Country: IT (occurrence: IT)
  Receive Date: 20180725
  Receipt Date: 20180927
  Transmission Date: 20181010
  Serious: Yes (Other)
  Sender: FDA-Public Use
  Company Number: IT-PFIZER INC-2018297096

PATIENT
  Age: 24 Year
  Sex: Male

DRUGS (2)
  1. MUSCORIL [Suspect]
     Active Substance: THIOCOLCHICOSIDE
     Indication: PAIN IN EXTREMITY
     Dosage: 1 DF, AS NEEDED
     Route: 048
  2. FELDENE [Suspect]
     Active Substance: PIROXICAM
     Indication: PAIN IN EXTREMITY
     Dosage: 1 DF, AS NEEDED
     Route: 048

REACTIONS (2)
  - Erosive oesophagitis [Unknown]
  - Abdominal pain upper [Unknown]

NARRATIVE: CASE EVENT DATE: 20180513
